FAERS Safety Report 7670795-2 (Version None)
Quarter: 2011Q3

REPORT INFORMATION
  Report Type: 
  Country: None (occurrence: None)
  Receive Date: 20110803
  Receipt Date: 20110708
  Transmission Date: 20111222
  Serious: Yes (Other)
  Sender: FDA-Public Use
  Company Number: AUR-APL-2011-04014

PATIENT
  Age: 79 Year
  Sex: Female
  Weight: 74.8435 kg

DRUGS (3)
  1. ALENDRONATE SODIUM [Suspect]
     Indication: OSTEOPOROSIS
     Dosage: (70 MG, 1 WK), ORAL
     Route: 048
     Dates: start: 20110201, end: 20110701
  2. PRAVASTATIN [Concomitant]
  3. LEVOTHYROXINE SODIUM [Concomitant]

REACTIONS (3)
  - MYALGIA [None]
  - ARTHRALGIA [None]
  - BONE PAIN [None]
